APPROVED DRUG PRODUCT: BRIVIACT
Active Ingredient: BRIVARACETAM
Strength: 50MG/5ML (10MG/ML)
Dosage Form/Route: SOLUTION;INTRAVENOUS
Application: N205837 | Product #001
Applicant: UCB INC
Approved: May 12, 2016 | RLD: Yes | RS: Yes | Type: RX

PATENTS:
Patent 6911461 | Expires: Feb 21, 2026
Patent 6911461 | Expires: Feb 21, 2026